FAERS Safety Report 13916852 (Version 2)
Quarter: 2017Q4

REPORT INFORMATION
  Report Type: Spontaneous
  Country: US (occurrence: US)
  Receive Date: 20170829
  Receipt Date: 20171009
  Transmission Date: 20180320
  Serious: No
  Sender: FDA-Public Use
  Company Number: US-ELI_LILLY_AND_COMPANY-US201708010296

PATIENT
  Sex: Female

DRUGS (3)
  1. HUMALOG [Suspect]
     Active Substance: INSULIN LISPRO
     Indication: TYPE 2 DIABETES MELLITUS
     Dosage: 9 U, TID
     Route: 065
     Dates: start: 201706
  2. HUMALOG [Suspect]
     Active Substance: INSULIN LISPRO
     Dosage: 9 U, TID
     Route: 065
  3. TOUJEO [Concomitant]
     Active Substance: INSULIN GLARGINE
     Indication: TYPE 2 DIABETES MELLITUS
     Dosage: 40 U, DAILY
     Route: 065

REACTIONS (3)
  - Product storage error [Unknown]
  - Blood glucose decreased [Recovered/Resolved]
  - Visual impairment [Not Recovered/Not Resolved]
